FAERS Safety Report 8805107 (Version 1)
Quarter: 2012Q4

REPORT INFORMATION
  Report Type: 
  Country: US (occurrence: US)
  Receive Date: 20120924
  Receipt Date: 20120924
  Transmission Date: 20130627
  Serious: Yes (Other)
  Sender: FDA-Public Use
  Company Number: US-ELI_LILLY_AND_COMPANY-US201209004378

PATIENT
  Age: 71 Year
  Sex: Male
  Weight: 113.38 kg

DRUGS (3)
  1. HUMULIN 30% REGULAR, 70% NPH [Suspect]
     Indication: TYPE 2 DIABETES MELLITUS
     Dosage: 10 u, tid
     Dates: start: 1997
  2. HUMULIN 30% REGULAR, 70% NPH [Suspect]
     Dosage: 10 u, tid
  3. CELEBREX [Concomitant]

REACTIONS (12)
  - Weight increased [Recovered/Resolved]
  - Adverse event [Unknown]
  - Liver function test abnormal [Unknown]
  - Pain in extremity [Unknown]
  - Arthritis [Not Recovered/Not Resolved]
  - Weight decreased [Unknown]
  - Blood glucose increased [Unknown]
  - Drug ineffective [Not Recovered/Not Resolved]
  - Blood glucose decreased [Unknown]
  - Glycosylated haemoglobin increased [Unknown]
  - Expired drug administered [Recovered/Resolved]
  - Medication error [Unknown]
